FAERS Safety Report 15416142 (Version 2)
Quarter: 2018Q4

REPORT INFORMATION
  Report Type: Spontaneous
  Country: US (occurrence: US)
  Receive Date: 20180923
  Receipt Date: 20181025
  Transmission Date: 20190204
  Serious: No
  Sender: FDA-Public Use
  Company Number: US-GLAXOSMITHKLINE-US2018167906

PATIENT
  Sex: Female

DRUGS (1)
  1. INCRUSE ELLIPTA [Suspect]
     Active Substance: UMECLIDINIUM BROMIDE
     Indication: PRODUCT USED FOR UNKNOWN INDICATION
     Dosage: UNK

REACTIONS (10)
  - Oral pain [Recovered/Resolved]
  - Oral candidiasis [Unknown]
  - Oral mucosa erosion [Recovered/Resolved]
  - Paraesthesia [Unknown]
  - Pain in jaw [Unknown]
  - Dental caries [Unknown]
  - Candida infection [Recovered/Resolved]
  - Dry mouth [Unknown]
  - Dental plaque [Unknown]
  - Gingival erythema [Unknown]
